FAERS Safety Report 7690624-0 (Version None)
Quarter: 2011Q3

REPORT INFORMATION
  Report Type: 
  Country: None (occurrence: None)
  Receive Date: 20110818
  Receipt Date: 20110805
  Transmission Date: 20111222
  Serious: Yes (Hospitalization)
  Sender: FDA-Public Use
  Company Number: FR-SANOFI-AVENTIS-2011SA050194

PATIENT
  Age: 2 Year
  Sex: Male
  Weight: 12.5 kg

DRUGS (3)
  1. CLAFORAN [Suspect]
     Indication: BACTERIAL SEPSIS
     Route: 042
     Dates: start: 20110624, end: 20110712
  2. FOSFOCINE [Suspect]
     Indication: BACTERIAL SEPSIS
     Route: 065
     Dates: start: 20110624, end: 20110702
  3. CIPROFLOXACIN [Suspect]
     Indication: BACTERIAL SEPSIS
     Route: 065
     Dates: start: 20110702, end: 20110712

REACTIONS (6)
  - RASH MACULO-PAPULAR [None]
  - DRUG RASH WITH EOSINOPHILIA AND SYSTEMIC SYMPTOMS [None]
  - EOSINOPHILIA [None]
  - PYREXIA [None]
  - FACE OEDEMA [None]
  - LYMPHADENOPATHY [None]
